FAERS Safety Report 8066621-2 (Version None)
Quarter: 2012Q1

REPORT INFORMATION
  Report Type: 
  Country: None (occurrence: None)
  Receive Date: 20120124
  Receipt Date: 20120119
  Transmission Date: 20120608
  Serious: Yes (Death)
  Sender: FDA-Public Use
  Company Number: PHHY2012MX005392

PATIENT
  Age: 73 Year
  Sex: Male

DRUGS (3)
  1. PAXIL [Concomitant]
     Dosage: 1.5 DF, DAILY
     Dates: start: 20080201
  2. ASPIRIN [Concomitant]
     Indication: HYPERTENSION
     Dosage: 1 DF, DAILY
     Dates: start: 20080201
  3. EXFORGE [Suspect]
     Indication: HYPERTENSION
     Dosage: 1 DF (160/5 MG), QD
     Dates: start: 20080201

REACTIONS (1)
  - INFARCTION [None]
